FAERS Safety Report 4832565-X (Version None)
Quarter: 2005Q4

REPORT INFORMATION
  Report Type: 
  Country: None (occurrence: None)
  Receive Date: 20051121
  Receipt Date: 20051111
  Transmission Date: 20060501
  Serious: Yes (Hospitalization)
  Sender: FDA-Public Use
  Company Number: 2005PK02145

PATIENT
  Age: 30 Year
  Sex: Male

DRUGS (10)
  1. SEROQUEL [Suspect]
     Route: 048
     Dates: start: 20040411
  2. SEROQUEL [Interacting]
     Route: 048
     Dates: start: 20040415
  3. ZYPREXA [Interacting]
     Dosage: UP TO 15 MG
     Dates: start: 19990101
  4. ZYPREXA [Interacting]
     Dates: start: 20000101
  5. ZYPREXA [Interacting]
     Dates: start: 20040101
  6. ZYPREXA [Interacting]
     Dosage: BETWEEN 10 AND 20 MG
     Dates: start: 20040331, end: 20040403
  7. ZYPREXA [Interacting]
     Dates: start: 20040404, end: 20040406
  8. ZYPREXA [Interacting]
     Dates: start: 20040407, end: 20040410
  9. ZYPREXA [Interacting]
     Dates: start: 20040411
  10. MEDICINALPRODUCT NOT SPECIFIED BY SENDER [Concomitant]

REACTIONS (3)
  - BLOOD CREATINE PHOSPHOKINASE INCREASED [None]
  - DRUG INTERACTION [None]
  - MYOPATHY [None]
